FAERS Safety Report 9969316 (Version 1)
Quarter: 2014Q1

REPORT INFORMATION
  Report Type: Spontaneous
  Country: US (occurrence: US)
  Receive Date: 20140306
  Receipt Date: 20140306
  Transmission Date: 20141002
  Serious: No
  Sender: FDA-Public Use
  Company Number: US-BIOGENIDEC-2014BI018517

PATIENT
  Age: 66 Year
  Sex: Female

DRUGS (3)
  1. TECFIDERA [Suspect]
     Indication: MULTIPLE SCLEROSIS
     Route: 048
     Dates: start: 20130607
  2. IBUPROFEN [Concomitant]
     Indication: PREMEDICATION
  3. IBUPROFEN [Concomitant]
     Indication: FLUSHING

REACTIONS (2)
  - Migraine with aura [Unknown]
  - Flushing [Unknown]
